FAERS Safety Report 8230568-9 (Version None)
Quarter: 2012Q1

REPORT INFORMATION
  Report Type: 
  Country: None (occurrence: None)
  Receive Date: 20120323
  Receipt Date: 20120320
  Transmission Date: 20120608
  Serious: Yes (Other)
  Sender: FDA-Public Use
  Company Number: US-B.I. PHARMACEUTICALS,INC./RIDGEFIELD-2011-BP-09403BP

PATIENT
  Sex: Male

DRUGS (12)
  1. POTASSIUM [Concomitant]
     Indication: ELECTROLYTE SUBSTITUTION THERAPY
  2. ASPIRIN [Concomitant]
     Indication: PROPHYLAXIS
  3. XANAX [Concomitant]
     Indication: ANXIETY
     Dosage: PRN
  4. DIOVAN [Concomitant]
     Indication: HYPERTENSION
  5. TRAZODONE HCL [Concomitant]
     Dosage: PRN
  6. CARDIZEM [Concomitant]
     Indication: ATRIAL FIBRILLATION
  7. ASPIRIN [Concomitant]
     Indication: HYPERTENSION
  8. CRESTOR [Concomitant]
     Indication: HYPERTENSION
  9. PRADAXA [Suspect]
     Indication: ATRIAL FIBRILLATION
     Dosage: 300 MG
     Route: 048
     Dates: start: 20101101, end: 20120101
  10. BYSTOLIC [Concomitant]
     Indication: HYPERTENSION
  11. CARDIZEM [Concomitant]
     Indication: HYPERTENSION
  12. LOPRESSOR [Concomitant]
     Indication: HYPERTENSION

REACTIONS (3)
  - ISCHAEMIC STROKE [None]
  - BLINDNESS UNILATERAL [None]
  - URTICARIA [None]
